FAERS Safety Report 15606582 (Version 1)
Quarter: 2018Q4

REPORT INFORMATION
  Report Type: Spontaneous
  Country: US (occurrence: US)
  Receive Date: 20181112
  Receipt Date: 20181112
  Transmission Date: 20190205
  Serious: No
  Sender: FDA-Public Use
  Company Number: US-IPSEN BIOPHARMACEUTICALS, INC.-2018-16687

PATIENT
  Age: 29 Year
  Sex: Female

DRUGS (1)
  1. DYSPORT [Suspect]
     Active Substance: ABOBOTULINUMTOXINA
     Indication: SKIN WRINKLING
     Dosage: 75 IU
     Dates: start: 20181020, end: 20181020

REACTIONS (2)
  - Urticaria [Unknown]
  - Overdose [Unknown]

NARRATIVE: CASE EVENT DATE: 20181020
